FAERS Safety Report 5769236-1 (Version None)
Quarter: 2008Q2

REPORT INFORMATION
  Report Type: 
  Country: None (occurrence: None)
  Receive Date: 20080612
  Receipt Date: 20080324
  Transmission Date: 20081010
  Serious: No
  Sender: FDA-Public Use
  Company Number: US-ABBOTT-08P-163-0444182-00

PATIENT
  Age: 64 Year
  Sex: Male

DRUGS (3)
  1. HUMIRA [Suspect]
     Indication: PSORIASIS
     Route: 058
     Dates: start: 20080312, end: 20080312
  2. HUMIRA [Suspect]
     Route: 058
     Dates: start: 20080319, end: 20080319
  3. HUMIRA [Suspect]
     Route: 058

REACTIONS (1)
  - OVERDOSE [None]
